FAERS Safety Report 5246760-1 (Version None)
Quarter: 2007Q1

REPORT INFORMATION
  Report Type: 
  Country: None (occurrence: None)
  Receive Date: 20070220
  Receipt Date: 20070209
  Transmission Date: 20070707
  Serious: Yes (Death, Hospitalization)
  Sender: FDA-Public Use
  Company Number: MEDI-0005430

PATIENT
  Age: 73 Year
  Sex: Male

DRUGS (6)
  1. ETHYOL [Suspect]
     Indication: RADIOTHERAPY
     Dosage: 500 MG, 5 IN 5 D, SUBCUTANEOUS
     Route: 058
     Dates: start: 20070109, end: 20070122
  2. CISPLATIN [Concomitant]
  3. RADIATION THERAPY [Concomitant]
  4. ZOFRAN [Concomitant]
  5. DECADRON [Concomitant]
  6. PROCHLORPERAZINE MALEATE [Concomitant]

REACTIONS (36)
  - ACUTE MYOCARDIAL INFARCTION [None]
  - ALANINE AMINOTRANSFERASE INCREASED [None]
  - ARTERIAL INSUFFICIENCY [None]
  - ARTERIOSCLEROSIS [None]
  - ASPARTATE AMINOTRANSFERASE INCREASED [None]
  - ASPIRATION [None]
  - BACK PAIN [None]
  - BLOOD PRESSURE SYSTOLIC INCREASED [None]
  - CARDIAC FAILURE CONGESTIVE [None]
  - CATHETER SITE HAEMORRHAGE [None]
  - CHRONIC OBSTRUCTIVE PULMONARY DISEASE [None]
  - CONDITION AGGRAVATED [None]
  - FALL [None]
  - HAEMATOCRIT DECREASED [None]
  - HAEMOGLOBIN DECREASED [None]
  - HEART RATE INCREASED [None]
  - HYPOTENSION [None]
  - HYPOVOLAEMIA [None]
  - ILIAC ARTERY STENOSIS [None]
  - INJECTION SITE ERYTHEMA [None]
  - LIVEDO RETICULARIS [None]
  - LOSS OF CONSCIOUSNESS [None]
  - NEUTROPHIL COUNT INCREASED [None]
  - PAIN IN EXTREMITY [None]
  - PLATELET COUNT DECREASED [None]
  - RASH GENERALISED [None]
  - RASH PAPULAR [None]
  - REFUSAL OF TREATMENT BY PATIENT [None]
  - RENAL ARTERY STENOSIS [None]
  - RENAL FAILURE [None]
  - RESPIRATORY DISTRESS [None]
  - RESPIRATORY FAILURE [None]
  - THROMBOCYTOPENIA [None]
  - THROMBOSIS [None]
  - VASCULAR INSUFFICIENCY [None]
  - WHITE BLOOD CELL COUNT DECREASED [None]
